FAERS Safety Report 10150319 (Version 1)
Quarter: 2014Q2

REPORT INFORMATION
  Report Type: Spontaneous
  Country: US (occurrence: US)
  Receive Date: 20140502
  Receipt Date: 20140502
  Transmission Date: 20141212
  Serious: Yes (Other)
  Sender: FDA-Public Use
  Company Number: US-AMGEN-USASP2014030730

PATIENT
  Age: 58 Year
  Sex: Female

DRUGS (3)
  1. PROLIA [Suspect]
     Indication: PRODUCT USED FOR UNKNOWN INDICATION
     Dosage: UNK
     Route: 065
     Dates: start: 201305
  2. VITAMIN D                          /00107901/ [Concomitant]
  3. PROGESTERONE [Concomitant]

REACTIONS (2)
  - Fall [Unknown]
  - Tibia fracture [Unknown]
